FAERS Safety Report 9792319 (Version 4)
Quarter: 2014Q1

REPORT INFORMATION
  Report Type: Spontaneous
  Country: US (occurrence: US)
  Receive Date: 20140102
  Receipt Date: 20140130
  Transmission Date: 20141002
  Serious: No
  Sender: FDA-Public Use
  Company Number: US-BIOGENIDEC-2013BI122354

PATIENT
  Age: 58 Year
  Sex: Male
  Weight: 116 kg

DRUGS (10)
  1. TECFIDERA [Suspect]
     Indication: PRIMARY PROGRESSIVE MULTIPLE SCLEROSIS
     Route: 048
     Dates: start: 201309
  2. TECFIDERA [Suspect]
     Indication: PRIMARY PROGRESSIVE MULTIPLE SCLEROSIS
     Dates: start: 201310
  3. AMPYRA [Concomitant]
     Indication: GAIT DISTURBANCE
     Route: 048
     Dates: start: 2010
  4. LYRICA [Concomitant]
     Indication: MULTIPLE SCLEROSIS
     Route: 048
     Dates: start: 20131209
  5. LYRICA [Concomitant]
     Indication: MULTIPLE SCLEROSIS
  6. LUNESTA [Concomitant]
     Route: 048
     Dates: start: 20131209
  7. LUNESTA [Concomitant]
  8. METFORMIN [Concomitant]
  9. ENABLEX [Concomitant]
  10. CIALIS [Concomitant]

REACTIONS (4)
  - Somnolence [Recovered/Resolved]
  - Fatigue [Recovered/Resolved]
  - Drug interaction [Recovered/Resolved]
  - Off label use [Unknown]
